FAERS Safety Report 5990446-2 (Version None)
Quarter: 2008Q4

REPORT INFORMATION
  Report Type: 
  Country: None (occurrence: None)
  Receive Date: 20081211
  Receipt Date: 20081201
  Transmission Date: 20090506
  Serious: Yes (Life-Threatening, Hospitalization)
  Sender: FDA-Public Use
  Company Number: DE-PFIZER INC-2008101482

PATIENT

DRUGS (1)
  1. INSPRA [Suspect]
     Indication: CARDIAC FAILURE
     Route: 048

REACTIONS (3)
  - NECROSIS [None]
  - PERIPHERAL VASCULAR DISORDER [None]
  - THROMBOCYTOPENIA [None]
